FAERS Safety Report 21308740 (Version 1)
Quarter: 2022Q3

REPORT INFORMATION
  Report Type: Spontaneous
  Country: US (occurrence: None)
  Receive Date: 20220908
  Receipt Date: 20220908
  Transmission Date: 20221027
  Serious: Yes (Other)
  Sender: FDA-Public Use
  Company Number: None

PATIENT
  Age: 18 Year
  Sex: Male
  Weight: 45 kg

DRUGS (3)
  1. QUETIAPINE [Suspect]
     Active Substance: QUETIAPINE
     Indication: Bipolar disorder
     Dates: start: 20220215
  2. QUETIAPINE [Suspect]
     Active Substance: QUETIAPINE
     Indication: Insomnia
  3. LAMOTRIGINE [Concomitant]
     Active Substance: LAMOTRIGINE
     Dosage: OTHER QUANTITY : OTHER QUANTITY : 1 CAPSULE(S);?FREQUENCY : AT BEDTIME;?;?OTHER QUANTITY : 1 CAPSULE
     Route: 048
     Dates: start: 20220215

REACTIONS (8)
  - Heart rate irregular [None]
  - Mood swings [None]
  - Heart rate increased [None]
  - Middle insomnia [None]
  - Panic attack [None]
  - Bipolar disorder [None]
  - Anxiety [None]
  - Victim of crime [None]

NARRATIVE: CASE EVENT DATE: 20220902
